FAERS Safety Report 17481700 (Version 3)
Quarter: 2020Q2

REPORT INFORMATION
  Report Type: Other
  Country: US (occurrence: US)
  Receive Date: 20200302
  Receipt Date: 20200402
  Transmission Date: 20200713
  Serious: Yes (Death)
  Sender: FDA-Public Use
  Company Number: US-INTERCEPT-PM2020000431

PATIENT
  Age: 63 Year
  Sex: Male

DRUGS (2)
  1. OCALIVA [Suspect]
     Active Substance: OBETICHOLIC ACID
     Dosage: 5 MG, 2X/WK
     Route: 048
     Dates: start: 20170224
  2. OCALIVA [Suspect]
     Active Substance: OBETICHOLIC ACID
     Indication: PRIMARY BILIARY CHOLANGITIS
     Dosage: 5 MG, QD
     Route: 048
     Dates: start: 20160906

REACTIONS (1)
  - Cervical vertebral fracture [Fatal]

NARRATIVE: CASE EVENT DATE: 20190212
